FAERS Safety Report 11196360 (Version 1)
Quarter: 2015Q2

REPORT INFORMATION
  Report Type: Spontaneous
  Country: US (occurrence: US)
  Receive Date: 20150617
  Receipt Date: 20150617
  Transmission Date: 20150821
  Serious: No
  Sender: FDA-Public Use
  Company Number: US-PFIZER INC-2015200528

PATIENT
  Sex: Female

DRUGS (2)
  1. BORIC ACID [Concomitant]
     Active Substance: BORIC ACID
     Indication: CANDIDA INFECTION
     Dosage: 600 MG, 1X/DAY
     Dates: start: 20150518
  2. FLUCONAZOLE. [Suspect]
     Active Substance: FLUCONAZOLE
     Indication: CANDIDA INFECTION
     Dosage: 200 MG, UNK
     Dates: start: 20150509

REACTIONS (1)
  - Drug ineffective [Unknown]
